FAERS Safety Report 21088128 (Version 1)
Quarter: 2022Q3

REPORT INFORMATION
  Report Type: Spontaneous
  Country: FR (occurrence: FR)
  Receive Date: 20220715
  Receipt Date: 20220715
  Transmission Date: 20221027
  Serious: Yes (Hospitalization)
  Sender: FDA-Public Use
  Company Number: None

PATIENT
  Age: 88 Year
  Sex: Male

DRUGS (1)
  1. AMOXICILLIN [Suspect]
     Active Substance: AMOXICILLIN
     Indication: Product used for unknown indication
     Dosage: 2 G, Q8H
     Route: 048
     Dates: start: 20220603, end: 20220606

REACTIONS (1)
  - Choriomeningitis lymphocytic [Not Recovered/Not Resolved]

NARRATIVE: CASE EVENT DATE: 20220610
